FAERS Safety Report 9763633 (Version 2)
Quarter: 2014Q1

REPORT INFORMATION
  Report Type: Spontaneous
  Country: US (occurrence: US)
  Receive Date: 20131216
  Receipt Date: 20140312
  Transmission Date: 20141002
  Serious: No
  Sender: FDA-Public Use
  Company Number: US-BIOGENIDEC-2013BI108357

PATIENT
  Age: 43 Year
  Sex: Male

DRUGS (2)
  1. TECFIDERA [Suspect]
     Indication: MULTIPLE SCLEROSIS
     Route: 048
     Dates: start: 201309
  2. TECFIDERA [Suspect]
     Indication: MULTIPLE SCLEROSIS
     Dates: start: 20130909

REACTIONS (6)
  - Weight increased [Not Recovered/Not Resolved]
  - Abdominal distension [Unknown]
  - Local swelling [Unknown]
  - Joint swelling [Unknown]
  - Tendonitis [Unknown]
  - Flushing [Unknown]
